FAERS Safety Report 26113474 (Version 1)
Quarter: 2025Q4

REPORT INFORMATION
  Report Type: Spontaneous
  Country: GB (occurrence: GB)
  Receive Date: 20251202
  Receipt Date: 20251202
  Transmission Date: 20260117
  Serious: Yes (Other)
  Sender: ELI LILLY AND COMPANY
  Company Number: None

PATIENT
  Sex: Female

DRUGS (1)
  1. TERIPARATIDE [Suspect]
     Active Substance: TERIPARATIDE
     Indication: Product used for unknown indication
     Dosage: 20 UG, DAILY (20MCG OD)
     Route: 065

REACTIONS (4)
  - Dizziness [Unknown]
  - Pain in extremity [Unknown]
  - Pain in extremity [Unknown]
  - Gait disturbance [Unknown]
